FAERS Safety Report 6673819-4 (Version None)
Quarter: 2010Q2

REPORT INFORMATION
  Report Type: 
  Country: None (occurrence: None)
  Receive Date: 20100407
  Receipt Date: 20100323
  Transmission Date: 20101027
  Serious: Yes (Other)
  Sender: FDA-Public Use
  Company Number: AUR-APL-2010-00929

PATIENT
  Age: 35 Year
  Sex: Male
  Weight: 86.17 kg

DRUGS (3)
  1. LISINOPRIL [Suspect]
     Indication: HYPERTENSION
     Dosage: 20MG
  2. CHANTIX [Suspect]
     Indication: SMOKING CESSATION THERAPY
     Dosage: ORAL
     Route: 048
     Dates: start: 20100318
  3. INHALER FOR ASTHMA (UNSPECIFIED) [Concomitant]

REACTIONS (3)
  - BLOOD CHOLESTEROL INCREASED [None]
  - FLATULENCE [None]
  - HEADACHE [None]
